FAERS Safety Report 21827475 (Version 1)
Quarter: 2023Q1

REPORT INFORMATION
  Report Type: Spontaneous
  Country: US (occurrence: US)
  Receive Date: 20230106
  Receipt Date: 20230106
  Transmission Date: 20230418
  Serious: Yes (Other)
  Sender: FDA-Public Use
  Company Number: US-TERSERA THERAPEUTICS LLC-2022TRS001559

PATIENT

DRUGS (3)
  1. PRIALT [Suspect]
     Active Substance: ZICONOTIDE ACETATE
     Indication: Pain
     Dosage: UNK
     Route: 037
  2. PRIALT [Suspect]
     Active Substance: ZICONOTIDE ACETATE
     Indication: Groin pain
     Dosage: DOSE INCREASED
     Route: 037
     Dates: start: 20220404
  3. PRIALT [Suspect]
     Active Substance: ZICONOTIDE ACETATE
     Indication: Neuralgia
     Dosage: 1500 MCG OR 20 MILLI
     Route: 037
     Dates: start: 20220428

REACTIONS (3)
  - Hallucination, auditory [Not Recovered/Not Resolved]
  - Migraine [Not Recovered/Not Resolved]
  - Blood pressure systolic increased [Unknown]

NARRATIVE: CASE EVENT DATE: 20220404
